FAERS Safety Report 6890803-6 (Version None)
Quarter: 2010Q3

REPORT INFORMATION
  Report Type: 
  Country: None (occurrence: None)
  Receive Date: 20100731
  Receipt Date: 20090323
  Transmission Date: 20110219
  Serious: No
  Sender: FDA-Public Use
  Company Number: US-PFIZER INC-2008160658

PATIENT

DRUGS (3)
  1. LIPITOR [Suspect]
  2. ALL OTHER THERAPEUTIC PRODUCTS [Suspect]
  3. PREDNISONE [Concomitant]

REACTIONS (2)
  - DRUG LEVEL INCREASED [None]
  - MYALGIA [None]
